FAERS Safety Report 17544448 (Version 2)
Quarter: 2020Q1

REPORT INFORMATION
  Report Type: Spontaneous
  Country: US (occurrence: US)
  Receive Date: 20200316
  Receipt Date: 20200320
  Transmission Date: 20200409
  Serious: Yes (Life-Threatening, Hospitalization, Other)
  Sender: FDA-Public Use
  Company Number: US-SA-2020SA063737

PATIENT
  Age: 32 Year
  Sex: Female

DRUGS (10)
  1. PREDNISONE. [Suspect]
     Active Substance: PREDNISONE
     Indication: RASH
  2. DEXAMETHASONE SALT NOT SPECIFIED [Suspect]
     Active Substance: DEXAMETHASONE
     Indication: NAUSEA
  3. PONATINIB [Suspect]
     Active Substance: PONATINIB
     Indication: HEPATOCELLULAR CARCINOMA
     Dosage: UNK, QCY
  4. FOLINIC ACID [Suspect]
     Active Substance: LEUCOVORIN
     Indication: HEPATOCELLULAR CARCINOMA
     Dosage: UNK
  5. NIVOLUMAB [Suspect]
     Active Substance: NIVOLUMAB
     Indication: HEPATOCELLULAR CARCINOMA
     Dosage: EVERY 2 WEEKS AT A STANDARD DOSE FOR 3 MONTHS
  6. DEXAMETHASONE SALT NOT SPECIFIED [Suspect]
     Active Substance: DEXAMETHASONE
     Indication: TRANSAMINASES INCREASED
     Dosage: UNK
  7. OXALIPLATIN. [Suspect]
     Active Substance: OXALIPLATIN
     Indication: HEPATOCELLULAR CARCINOMA
     Dosage: UNK, QCY
  8. SORAFENIB [Suspect]
     Active Substance: SORAFENIB
     Indication: HEPATOCELLULAR CARCINOMA
     Dosage: UNK, QCY
  9. FLUOROURACIL. [Suspect]
     Active Substance: FLUOROURACIL
     Indication: HEPATOCELLULAR CARCINOMA
     Dosage: UNK, QCY
  10. GEMCITABINE. [Suspect]
     Active Substance: GEMCITABINE
     Indication: HEPATOCELLULAR CARCINOMA
     Dosage: UNK, QCY

REACTIONS (6)
  - Hyperammonaemia [Recovering/Resolving]
  - Condition aggravated [Recovering/Resolving]
  - Soft tissue necrosis [Unknown]
  - Catabolic state [Unknown]
  - Hyperammonaemic encephalopathy [Unknown]
  - Hepatic steatosis [Unknown]
